FAERS Safety Report 4930810-3 (Version None)
Quarter: 2006Q1

REPORT INFORMATION
  Report Type: 
  Country: None (occurrence: None)
  Receive Date: 20060227
  Receipt Date: 20060209
  Transmission Date: 20060701
  Serious: Yes (Life-Threatening, Hospitalization)
  Sender: FDA-Public Use
  Company Number: 222397

PATIENT
  Age: 60 Year
  Sex: Male

DRUGS (2)
  1. AVASTIN [Suspect]
     Indication: RENAL CELL CARCINOMA STAGE UNSPECIFIED
     Dosage: 10 MG/KG, Q2W, INTRAVENOUS
     Route: 042
     Dates: start: 20050115, end: 20060119
  2. RADIATION(RADIATION THERAPY) [Suspect]
     Indication: RENAL CELL CARCINOMA STAGE UNSPECIFIED

REACTIONS (10)
  - ABDOMINAL PAIN [None]
  - FLATULENCE [None]
  - GASTROINTESTINAL HYPOMOTILITY [None]
  - GASTROINTESTINAL NECROSIS [None]
  - ISCHAEMIA [None]
  - LARGE INTESTINE PERFORATION [None]
  - MALIGNANT NEOPLASM PROGRESSION [None]
  - PAIN [None]
  - PELVIC PAIN [None]
  - RENAL CELL CARCINOMA STAGE UNSPECIFIED [None]
